FAERS Safety Report 4398693-0 (Version None)
Quarter: 2004Q3

REPORT INFORMATION
  Report Type: 
  Country: None (occurrence: None)
  Receive Date: 20040712
  Receipt Date: 20040628
  Transmission Date: 20050211
  Serious: Yes (Hospitalization)
  Sender: FDA-Public Use
  Company Number: 04P-062-0265444-00

PATIENT
  Sex: Male

DRUGS (5)
  1. KALETRA SOFT GELATIN CAPULES (KALETRA) (LOPINAVIR/RITONAVIR) (LOPINAVI [Suspect]
     Indication: HIV INFECTION
     Dosage: PER ORAL
     Route: 048
     Dates: start: 20020101, end: 20040626
  2. VIREAD [Concomitant]
  3. ABACAVIR SULFATE [Concomitant]
  4. PAROXAT [Concomitant]
  5. SILDENAFIL CITRATE [Concomitant]

REACTIONS (2)
  - MYALGIA [None]
  - RHABDOMYOLYSIS [None]
